FAERS Safety Report 4986708-8 (Version None)
Quarter: 2006Q2

REPORT INFORMATION
  Report Type: 
  Country: None (occurrence: None)
  Receive Date: 20060428
  Receipt Date: 20051114
  Transmission Date: 20061013
  Serious: Yes (Hospitalization, Disabling)
  Sender: FDA-Public Use
  Company Number: US-MERCK-0511USA02677

PATIENT
  Age: 42 Year
  Sex: Female
  Weight: 82 kg

DRUGS (5)
  1. VIOXX [Suspect]
     Indication: SPONDYLITIS
     Route: 048
     Dates: start: 20040112, end: 20040101
  2. CAPTOPRIL [Concomitant]
     Route: 065
  3. GLUCOVANCE [Concomitant]
     Route: 065
  4. VISTARIL [Concomitant]
     Route: 065
  5. FLEXERIL [Concomitant]
     Indication: MUSCLE SPASMS
     Route: 048

REACTIONS (12)
  - ANXIETY [None]
  - ASTHMA [None]
  - CARDIAC FAILURE CONGESTIVE [None]
  - DIARRHOEA [None]
  - DRUG HYPERSENSITIVITY [None]
  - HYPERTENSION [None]
  - HYPOKALAEMIA [None]
  - HYPOTENSION [None]
  - JOINT ABSCESS [None]
  - MEMORY IMPAIRMENT [None]
  - MOOD SWINGS [None]
  - SINUSITIS [None]
